FAERS Safety Report 25071052 (Version 1)
Quarter: 2025Q1

REPORT INFORMATION
  Report Type: Spontaneous
  Country: JP (occurrence: JP)
  Receive Date: 20250312
  Receipt Date: 20250312
  Transmission Date: 20250408
  Serious: Yes (Hospitalization)
  Sender: ROCHE
  Company Number: JP-CHUGAI-2025007132

PATIENT
  Age: 52 Year
  Sex: Male

DRUGS (4)
  1. CELLCEPT [Suspect]
     Active Substance: MYCOPHENOLATE MOFETIL
     Indication: Prophylaxis against graft versus host disease
     Route: 050
  2. TACROLIMUS [Concomitant]
     Active Substance: TACROLIMUS
     Indication: Prophylaxis against graft versus host disease
     Route: 065
  3. FLUDARABINE PHOSPHATE [Concomitant]
     Active Substance: FLUDARABINE PHOSPHATE
     Route: 065
  4. MELPHALAN [Concomitant]
     Active Substance: MELPHALAN
     Route: 065

REACTIONS (6)
  - Necrotising fasciitis [Unknown]
  - Acute kidney injury [Unknown]
  - Decreased immune responsiveness [Unknown]
  - Escherichia infection [Unknown]
  - COVID-19 [Recovering/Resolving]
  - Parainfluenzae virus infection [Recovering/Resolving]
